FAERS Safety Report 15273807 (Version 1)
Quarter: 2018Q3

REPORT INFORMATION
  Report Type: Spontaneous
  Country: BR (occurrence: BR)
  Receive Date: 20180813
  Receipt Date: 20180813
  Transmission Date: 20181010
  Serious: Yes (Hospitalization, Other)
  Sender: FDA-Public Use
  Company Number: BR-009507513-1808BRA005321

PATIENT
  Age: 61 Year
  Sex: Male
  Weight: 94 kg

DRUGS (13)
  1. INSULIN [Concomitant]
     Active Substance: INSULIN NOS
     Indication: TYPE 2 DIABETES MELLITUS
  2. PHENERGAN [Concomitant]
     Active Substance: PROMETHAZINE HYDROCHLORIDE
     Indication: ANTIALLERGIC THERAPY
     Dosage: 25 MG, UNK
  3. SIMVASTATIN. [Concomitant]
     Active Substance: SIMVASTATIN
     Indication: DIABETES MELLITUS INADEQUATE CONTROL
     Dosage: 20 MG, 1TABLET AT NIGH
  4. GLIMEPIRIDE. [Concomitant]
     Active Substance: GLIMEPIRIDE
     Indication: TYPE 2 DIABETES MELLITUS
     Dosage: 4 MG, 1 TABLET A DAY ON AN EMPTY STOMACH
  5. RIVOTRIL [Concomitant]
     Active Substance: CLONAZEPAM
     Indication: POOR QUALITY SLEEP
     Dosage: 2 MG, ONE TABLET AT BEDTIME, DAILY
     Dates: start: 2012
  6. NEOZINE [Concomitant]
     Active Substance: LEVOMEPROMAZINE
     Indication: POOR QUALITY SLEEP
     Dosage: 100 MG, HALF A TABLET AT BEDTIME, DAILY
     Dates: start: 2012
  7. LITHIUM CARBONATE. [Concomitant]
     Active Substance: LITHIUM CARBONATE
     Indication: POOR QUALITY SLEEP
     Dosage: 1 TABLET AT BEDTIME, DAILY
  8. METFORMIN [Concomitant]
     Active Substance: METFORMIN HYDROCHLORIDE
     Indication: TYPE 2 DIABETES MELLITUS
  9. JANUVIA [Suspect]
     Active Substance: SITAGLIPTIN PHOSPHATE
     Indication: TYPE 2 DIABETES MELLITUS
     Dosage: 50 MG, UNK
     Route: 048
  10. ENALAPRIL MALEATE. [Concomitant]
     Active Substance: ENALAPRIL MALEATE
     Indication: HYPERTENSION
     Dosage: 10 MG,1 TABLET IN THE MORNING
  11. RISPERIDONE. [Concomitant]
     Active Substance: RISPERIDONE
     Indication: POOR QUALITY SLEEP
     Dosage: 1 MG, 1 TABLET AT BEDTIME, DAILY,
  12. JANUVIA [Suspect]
     Active Substance: SITAGLIPTIN PHOSPHATE
     Dosage: 50 MG, 1 TABLET A DAY AFTER BREAKFAST
     Route: 048
     Dates: start: 20180803
  13. GLICLAZIDE [Concomitant]
     Active Substance: GLICLAZIDE
     Indication: TYPE 2 DIABETES MELLITUS
     Dosage: 30 MG, UNK
     Dates: start: 20180803

REACTIONS (4)
  - Diabetes mellitus inadequate control [Unknown]
  - Drug ineffective [Unknown]
  - Blood glucose abnormal [Unknown]
  - Depression [Unknown]

NARRATIVE: CASE EVENT DATE: 2014
